FAERS Safety Report 11118833 (Version 1)
Quarter: 2015Q2

REPORT INFORMATION
  Report Type: Spontaneous
  Country: NO (occurrence: NO)
  Receive Date: 20150518
  Receipt Date: 20150518
  Transmission Date: 20150821
  Serious: Yes (Other)
  Sender: FDA-Public Use
  Company Number: NO-009507513-1505NOR005206

PATIENT
  Sex: Female

DRUGS (1)
  1. ALENDRONATE SODIUM AND CHOLECALCIFEROL, MSD [Suspect]
     Active Substance: ALENDRONATE SODIUM\CHOLECALCIFEROL
     Indication: OSTEOPOROSIS
     Route: 048
     Dates: start: 2011, end: 2013

REACTIONS (2)
  - Seizure like phenomena [Recovered/Resolved]
  - Partial seizures [Recovered/Resolved]

NARRATIVE: CASE EVENT DATE: 2012
